FAERS Safety Report 7159001-5 (Version None)
Quarter: 2010Q4

REPORT INFORMATION
  Report Type: 
  Country: None (occurrence: None)
  Receive Date: 20101214
  Receipt Date: 20100723
  Transmission Date: 20110411
  Serious: No
  Sender: FDA-Public Use
  Company Number: US-ASTRAZENECA-2010SE34499

PATIENT
  Sex: Female

DRUGS (2)
  1. CRESTOR [Suspect]
     Route: 048
     Dates: start: 20100101, end: 20100701
  2. CRESTOR [Suspect]
     Route: 048
     Dates: start: 20100701

REACTIONS (2)
  - LOWER EXTREMITY MASS [None]
  - MYALGIA [None]
